FAERS Safety Report 21699058 (Version 2)
Quarter: 2022Q4

REPORT INFORMATION
  Report Type: Spontaneous
  Country: US (occurrence: US)
  Receive Date: 20221208
  Receipt Date: 20221227
  Transmission Date: 20230113
  Serious: No
  Sender: FDA-Public Use
  Company Number: US-002147023-NVSC2022US284153

PATIENT
  Sex: Female

DRUGS (2)
  1. COMBIPATCH [Suspect]
     Active Substance: ESTRADIOL\NORETHINDRONE ACETATE
     Indication: Infertility
     Dosage: 1 DOSAGE FORM, EVERY 3-4 DAYS (AROUND THE MONTH OF APR OR MAY)
     Route: 062
     Dates: start: 2022
  2. COMBIPATCH [Suspect]
     Active Substance: ESTRADIOL\NORETHINDRONE ACETATE
     Indication: Blood oestrogen decreased
     Dosage: 0.05/0.14 MG
     Route: 062
     Dates: start: 202211

REACTIONS (6)
  - Feeling abnormal [Not Recovered/Not Resolved]
  - Product adhesion issue [Not Recovered/Not Resolved]
  - Device adhesion issue [Not Recovered/Not Resolved]
  - Product administration error [Recovered/Resolved]
  - Product storage error [Recovered/Resolved]
  - Off label use [Not Recovered/Not Resolved]

NARRATIVE: CASE EVENT DATE: 20220101
